FAERS Safety Report 6208458-2 (Version None)
Quarter: 2009Q2

REPORT INFORMATION
  Report Type: 
  Country: None (occurrence: None)
  Receive Date: 20090529
  Receipt Date: 20090519
  Transmission Date: 20091009
  Serious: Yes (Other)
  Sender: FDA-Public Use
  Company Number: US-AVENTIS-200912912US

PATIENT
  Sex: Female
  Weight: 68.04 kg

DRUGS (20)
  1. LANTUS [Suspect]
     Dosage: DOSE: 20-24
     Route: 058
     Dates: start: 20090404, end: 20090502
  2. LANTUS [Concomitant]
     Route: 058
     Dates: start: 20000101
  3. THYROID TAB [Concomitant]
     Indication: THYROID DISORDER
     Dosage: DOSE: 67 MG X 2
     Dates: start: 20030101
  4. HORMONES AND RELATED AGENTS [Concomitant]
     Dosage: DOSE: 0.3 ML EVERY 3-4 DAYS
     Dates: start: 20050101
  5. DHEA [Concomitant]
     Dosage: DOSE: 5 MG 1 CAP
  6. GLUCOSAMINE SULFATE [Concomitant]
     Dosage: DOSE: 1 CAP 12 HOURS APART
  7. GYMNEMA SYLVESTER [Concomitant]
     Dosage: DOSE: 2 CUPS  12 HOURS APART
  8. HMF PWD [Concomitant]
     Dosage: DOSE: 1/4 TSP
  9. EPA DHA EXTRA STRENGTH [Concomitant]
     Dosage: DOSE: 1 CAP
  10. VITAMIN D 3 [Concomitant]
     Dosage: DOSE: 1000 U 1 CAP
  11. VIT B COMPLEX [Concomitant]
     Dosage: DOSE: 1 CAP
  12. E 400 [Concomitant]
     Dosage: DOSE: 1 CAP
  13. GRAPESEED EXTRACT [Concomitant]
     Dosage: DOSE: 1 CAP
  14. PHYTO B [Concomitant]
     Dosage: DOSE: 2 PELLETS
  15. BIOTONE [Concomitant]
     Dosage: DOSE: 3 CAPS DAILY
  16. MAGNESIUM SULFATE [Concomitant]
  17. CALCIUM [Concomitant]
  18. MULTI-VITAMINS [Concomitant]
     Dosage: DOSE: 3 CAPS
  19. NUTRITIONAL SUPPLEMENT [Concomitant]
     Dosage: DOSE: 1 PACKET
  20. ASPIRIN [Concomitant]
     Dosage: DOSE: 2 TABS

REACTIONS (4)
  - BLOOD GLUCOSE INCREASED [None]
  - CONVULSION [None]
  - DYSPNOEA [None]
  - TREMOR [None]
